FAERS Safety Report 10889249 (Version 1)
Quarter: 2015Q1

REPORT INFORMATION
  Report Type: Other
  Country: GB (occurrence: GB)
  Receive Date: 20150305
  Receipt Date: 20150305
  Transmission Date: 20150721
  Serious: Yes (Other)
  Sender: FDA-Public Use
  Company Number: GB-MYLANLABS-2015M1005708

PATIENT

DRUGS (1)
  1. TERBINAFINE [Suspect]
     Active Substance: TERBINAFINE
     Indication: ONYCHOMYCOSIS
     Dosage: UNK
     Route: 048
     Dates: start: 2014, end: 2014

REACTIONS (3)
  - Anosmia [Not Recovered/Not Resolved]
  - Sensory loss [Not Recovered/Not Resolved]
  - Ageusia [Not Recovered/Not Resolved]
